FAERS Safety Report 9314169 (Version 2)
Quarter: 2013Q2

REPORT INFORMATION
  Report Type: Spontaneous
  Country: CH (occurrence: CH)
  Receive Date: 20130529
  Receipt Date: 20130618
  Transmission Date: 20140414
  Serious: Yes (Other)
  Sender: FDA-Public Use
  Company Number: CH-JNJFOC-20130509567

PATIENT
  Age: 32 Year
  Sex: Male
  Weight: 70 kg

DRUGS (8)
  1. HALDOL [Suspect]
     Indication: BIPOLAR DISORDER
     Dosage: 3X2.5 MG SC, +3X1 MG SC IN REVERSE
     Route: 058
     Dates: start: 20130508
  2. HALDOL [Suspect]
     Indication: BIPOLAR DISORDER
     Dosage: 3X2.5 MG SC, +3X1 MG SC IN RESERVE
     Route: 058
     Dates: start: 20130507
  3. HALDOL [Suspect]
     Indication: BIPOLAR DISORDER
     Dosage: 3X 2.5 MG/DAY SC (RESERVES STOPPED)
     Route: 058
     Dates: start: 20130510
  4. HALDOL [Suspect]
     Indication: BIPOLAR DISORDER
     Dosage: 3X1 MG SC   3X1 MG SC INRESERVE
     Route: 058
     Dates: start: 20130430
  5. HALDOL [Suspect]
     Indication: BIPOLAR DISORDER
     Dosage: 3X2.5 MG SC, +6X1 MG SC IN RESERVE
     Route: 058
     Dates: start: 20130509
  6. PIPERACILLIN /TAZOBACTAM [Concomitant]
     Indication: PRODUCT USED FOR UNKNOWN INDICATION
     Route: 041
  7. TRANXILIUM [Concomitant]
     Indication: PRODUCT USED FOR UNKNOWN INDICATION
     Route: 041
     Dates: start: 201304
  8. VANCOMYCIN [Concomitant]
     Indication: PRODUCT USED FOR UNKNOWN INDICATION
     Route: 041

REACTIONS (3)
  - Ventricular tachycardia [Recovered/Resolved]
  - Electrocardiogram QT prolonged [Unknown]
  - Incorrect route of drug administration [Unknown]
